FAERS Safety Report 7277087-4 (Version None)
Quarter: 2011Q1

REPORT INFORMATION
  Report Type: 
  Country: None (occurrence: None)
  Receive Date: 20110202
  Receipt Date: 20110202
  Transmission Date: 20110831
  Serious: Yes (Death)
  Sender: FDA-Public Use
  Company Number: None

PATIENT
  Age: 72 Year
  Sex: Male
  Weight: 79.3795 kg

DRUGS (1)
  1. CIPROFLOXACIN HCL [Suspect]
     Dosage: 1 TWICE A DAILY
     Dates: start: 20070906, end: 20070908

REACTIONS (1)
  - CEREBRAL THROMBOSIS [None]
